FAERS Safety Report 24396553 (Version 1)
Quarter: 2024Q4

REPORT INFORMATION
  Report Type: Spontaneous
  Country: CN (occurrence: CN)
  Receive Date: 20241004
  Receipt Date: 20241004
  Transmission Date: 20250115
  Serious: Yes (Other)
  Sender: MYLAN
  Company Number: CN-MYLANLABS-2024M1089085

PATIENT
  Age: 66 Year
  Sex: Female
  Weight: 50 kg

DRUGS (2)
  1. CELEBREX [Suspect]
     Active Substance: CELECOXIB
     Indication: Arthralgia
     Dosage: 0.2 GRAM, TID (0.2G PO BID)
     Route: 048
     Dates: start: 20240915, end: 20240923
  2. HERBALS [Suspect]
     Active Substance: HERBALS
     Indication: Chronic kidney disease
     Dosage: 1.44 GRAM, TID
     Route: 048
     Dates: start: 20240915, end: 20240923

REACTIONS (2)
  - Abnormal faeces [Recovering/Resolving]
  - Rash [Recovering/Resolving]

NARRATIVE: CASE EVENT DATE: 20240923
